FAERS Safety Report 6757535-6 (Version None)
Quarter: 2010Q2

REPORT INFORMATION
  Report Type: 
  Country: None (occurrence: None)
  Receive Date: 20100607
  Receipt Date: 20100528
  Transmission Date: 20101027
  Serious: No
  Sender: FDA-Public Use
  Company Number: 2009BI035724

PATIENT
  Sex: Female

DRUGS (2)
  1. TYSABRI [Suspect]
     Indication: MULTIPLE SCLEROSIS
     Route: 042
     Dates: start: 20050501, end: 20050701
  2. TYSABRI [Suspect]
     Route: 042
     Dates: start: 20090226

REACTIONS (13)
  - BALANCE DISORDER [None]
  - BRONCHITIS [None]
  - CRYING [None]
  - FALL [None]
  - FATIGUE [None]
  - MIGRAINE [None]
  - NASOPHARYNGITIS [None]
  - OEDEMA PERIPHERAL [None]
  - PAIN [None]
  - SINUSITIS [None]
  - STRESS [None]
  - URINARY TRACT INFECTION [None]
  - VISUAL IMPAIRMENT [None]
